FAERS Safety Report 12270979 (Version 1)
Quarter: 2016Q2

REPORT INFORMATION
  Report Type: Report from Study
  Country: US (occurrence: US)
  Receive Date: 20160415
  Receipt Date: 20160415
  Transmission Date: 20160815
  Serious: No
  Sender: FDA-Public Use
  Company Number: ADR-2015-00420

PATIENT
  Age: 76 Year
  Sex: Male

DRUGS (6)
  1. BUPIVACAINE. [Suspect]
     Active Substance: BUPIVACAINE
     Dosage: 2.376 MG/DAY
     Route: 037
     Dates: end: 20120601
  2. BUPIVACAINE. [Suspect]
     Active Substance: BUPIVACAINE
     Dosage: 2.503 MG/DAY
     Route: 037
     Dates: start: 20120601
  3. COMPOUNDED BACLOFEN [Suspect]
     Active Substance: BACLOFEN
     Dosage: 21.383MCG/DAY
     Route: 037
     Dates: end: 20120601
  4. FENTANYL. [Suspect]
     Active Substance: FENTANYL
     Dosage: 1900.7MCG/DAY
     Route: 037
     Dates: end: 20120601
  5. COMPOUNDED BACLOFEN [Suspect]
     Active Substance: BACLOFEN
     Dosage: 22.526 MCG/DAY
     Route: 037
     Dates: start: 20120601
  6. FENTANYL. [Suspect]
     Active Substance: FENTANYL
     Dosage: 2,002.3 MCG/DAY
     Route: 037
     Dates: start: 20120601

REACTIONS (3)
  - Implant site erythema [Recovered/Resolved]
  - Implant site swelling [Recovered/Resolved]
  - Tenderness [Recovered/Resolved]
